FAERS Safety Report 4397544-8 (Version None)
Quarter: 2004Q4

REPORT INFORMATION
  Report Type: 
  Country: None (occurrence: None)
  Receive Date: 20040708
  Receipt Date: 20040623
  Transmission Date: 20050328
  Serious: Yes (Hospitalization)
  Sender: FDA-Public Use
  Company Number: 2004-DE-03479GD

PATIENT
  Sex: Female

DRUGS (3)
  1. CYCLOPHOSPHAMIDE [Suspect]
     Indication: BONE MARROW CONDITIONING REGIMEN
     Dosage: IV
     Route: 042
  2. BUSULPHAN (BUSULPHAN) [Suspect]
     Indication: BONE MARROW CONDITIONING REGIMEN
     Dosage: IV
     Route: 042
  3. ANTI-THYMOCYTE GLOBULIN (ANTITHYMOCYTE IMMUNOGLOBULIN) [Suspect]
     Indication: BONE MARROW CONDITIONING REGIMEN
     Dosage: IV
     Route: 042

REACTIONS (23)
  - BLOOD CULTURE POSITIVE [None]
  - CIRCULATORY COLLAPSE [None]
  - COUGH [None]
  - CYTOMEGALOVIRUS INFECTION [None]
  - DILATATION VENTRICULAR [None]
  - FLOPPY INFANT [None]
  - GRAFT VERSUS HOST DISEASE [None]
  - HYPOTONIA [None]
  - LUNG INFECTION [None]
  - OXYGEN SATURATION DECREASED [None]
  - PALLOR [None]
  - PULMONARY HYPERTENSION [None]
  - PULMONARY TOXICITY [None]
  - PULMONARY VENO-OCCLUSIVE DISEASE [None]
  - RESPIRATORY FAILURE [None]
  - RHINITIS [None]
  - SHOCK [None]
  - STREPTOCOCCAL INFECTION [None]
  - TACHYPNOEA [None]
  - TRICUSPID VALVE INCOMPETENCE [None]
  - VENOOCCLUSIVE DISEASE [None]
  - VENTRICULAR DYSFUNCTION [None]
  - VOMITING [None]
